FAERS Safety Report 4949548-1 (Version None)
Quarter: 2006Q1

REPORT INFORMATION
  Report Type: 
  Country: None (occurrence: None)
  Receive Date: 20060316
  Receipt Date: 20060308
  Transmission Date: 20060701
  Serious: Yes (Other)
  Sender: FDA-Public Use
  Company Number: 2006033278

PATIENT
  Age: 37 Year
  Sex: Male
  Weight: 90.7194 kg

DRUGS (1)
  1. SUDAFED PE (PHENYLEPHRINE) [Suspect]
     Indication: NASAL CONGESTION
     Dosage: ONE TABLET ONCE DAILY, ORAL
     Route: 048
     Dates: start: 20060307, end: 20060308

REACTIONS (4)
  - ABNORMAL BEHAVIOUR [None]
  - DEPRESSED LEVEL OF CONSCIOUSNESS [None]
  - HYPERHIDROSIS [None]
  - PARAESTHESIA [None]
